FAERS Safety Report 4874355-8 (Version None)
Quarter: 2006Q1

REPORT INFORMATION
  Report Type: 
  Country: None (occurrence: None)
  Receive Date: 20060103
  Receipt Date: 20060103
  Transmission Date: 20060701
  Serious: Yes (Hospitalization)
  Sender: FDA-Public Use
  Company Number: None

PATIENT
  Age: 55 Year
  Sex: Female
  Weight: 196 kg

DRUGS (4)
  1. WARFARIN SODIUM [Suspect]
     Indication: DRUG TOXICITY
  2. WARFARIN SODIUM [Suspect]
     Indication: EPISTAXIS
  3. DIFLUCAN [Suspect]
  4. ALLOPURINOL [Suspect]

REACTIONS (4)
  - CONTUSION [None]
  - DRUG INTERACTION [None]
  - EPISTAXIS [None]
  - INTERNATIONAL NORMALISED RATIO INCREASED [None]
